FAERS Safety Report 9670230 (Version 1)
Quarter: 2013Q4

REPORT INFORMATION
  Report Type: Spontaneous
  Country: US (occurrence: US)
  Receive Date: 20131105
  Receipt Date: 20131105
  Transmission Date: 20140711
  Serious: Yes (Death)
  Sender: FDA-Public Use
  Company Number: PHHY2013US124423

PATIENT
  Sex: 0

DRUGS (2)
  1. GLEEVEC [Suspect]
     Indication: BRAIN NEOPLASM
     Dosage: UNK UKN, UNK
  2. GLEEVEC [Suspect]
     Indication: OFF LABEL USE

REACTIONS (1)
  - Cerebral haemorrhage [Fatal]
